FAERS Safety Report 4836484-4 (Version None)
Quarter: 2005Q4

REPORT INFORMATION
  Report Type: 
  Country: None (occurrence: None)
  Receive Date: 20051118
  Receipt Date: 20051108
  Transmission Date: 20060501
  Serious: Yes (Hospitalization)
  Sender: FDA-Public Use
  Company Number: 2005149345

PATIENT
  Age: 50 Year
  Sex: Female

DRUGS (3)
  1. NEURONTIN [Suspect]
     Indication: BACK PAIN
     Dosage: 3000 MG (600 MG, 5 IN 1 D), ORAL
     Route: 048
     Dates: start: 20050807, end: 20050930
  2. DICLOFENAC SODIUM [Concomitant]
  3. FOLIC ACID [Concomitant]

REACTIONS (3)
  - DIALYSIS [None]
  - RENAL FAILURE [None]
  - TUBULOINTERSTITIAL NEPHRITIS [None]
